FAERS Safety Report 5858643-4 (Version None)
Quarter: 2008Q3

REPORT INFORMATION
  Report Type: 
  Country: None (occurrence: None)
  Receive Date: 20080818
  Receipt Date: 20080710
  Transmission Date: 20090109
  Serious: No
  Sender: FDA-Public Use
  Company Number: WAES 0807USA01856

PATIENT
  Age: 39 Year
  Sex: Female

DRUGS (2)
  1. JANUVIA [Suspect]
     Indication: TYPE 2 DIABETES MELLITUS
     Dosage: 100MG/DAILY/PO
     Route: 048
     Dates: start: 20080401
  2. PRAVASTATIN SODIUM [Concomitant]

REACTIONS (2)
  - DYSPNOEA [None]
  - NASAL CONGESTION [None]
